FAERS Safety Report 6006145-7 (Version None)
Quarter: 2008Q4

REPORT INFORMATION
  Report Type: 
  Country: None (occurrence: None)
  Receive Date: 20081217
  Receipt Date: 20080620
  Transmission Date: 20090506
  Serious: No
  Sender: FDA-Public Use
  Company Number: US-BAUSCH-2008BL002768

PATIENT
  Age: 74 Year
  Sex: Female

DRUGS (3)
  1. ZYLET [Suspect]
     Indication: BLEPHARITIS
     Route: 047
     Dates: start: 20080616, end: 20080623
  2. ZYLET [Suspect]
     Route: 047
     Dates: start: 20080702
  3. AVAPRO [Concomitant]
     Indication: BLOOD PRESSURE
     Route: 048

REACTIONS (2)
  - DRUG HYPERSENSITIVITY [None]
  - EYE IRRITATION [None]
